FAERS Safety Report 18899788 (Version 1)
Quarter: 2021Q1

REPORT INFORMATION
  Report Type: Spontaneous
  Country: US (occurrence: US)
  Receive Date: 20210216
  Receipt Date: 20210216
  Transmission Date: 20210420
  Serious: Yes (Other)
  Sender: FDA-Public Use
  Company Number: US-SERVIER-S21001202

PATIENT

DRUGS (5)
  1. PEPCID [Concomitant]
     Active Substance: FAMOTIDINE
     Indication: PREMEDICATION
     Dosage: 20 MG, ONE DOSE
     Route: 048
     Dates: start: 20210205, end: 20210205
  2. ONCASPAR [Suspect]
     Active Substance: PEGASPARGASE
     Indication: ACUTE LYMPHOCYTIC LEUKAEMIA
     Dosage: UNK
     Route: 042
  3. ZOFRAN [Concomitant]
     Active Substance: ONDANSETRON HYDROCHLORIDE
     Indication: PREMEDICATION
     Dosage: 8 MG, ONE DOSE
     Route: 042
     Dates: start: 20210205, end: 20210205
  4. ONCASPAR [Suspect]
     Active Substance: PEGASPARGASE
     Dosage: 3750 IU, ONE DOSE
     Route: 042
     Dates: start: 20210205, end: 20210205
  5. BENADRYL [Concomitant]
     Active Substance: DIPHENHYDRAMINE HYDROCHLORIDE
     Indication: PREMEDICATION
     Dosage: 50 MG, ONE DOSE
     Route: 048
     Dates: start: 20210205, end: 20210205

REACTIONS (1)
  - Anaphylactic reaction [Recovered/Resolved]

NARRATIVE: CASE EVENT DATE: 20210205
